FAERS Safety Report 6867545-6 (Version None)
Quarter: 2010Q3

REPORT INFORMATION
  Report Type: 
  Country: None (occurrence: None)
  Receive Date: 20100722
  Receipt Date: 20100716
  Transmission Date: 20110219
  Serious: Yes (Other)
  Sender: FDA-Public Use
  Company Number: RU-BAYER-201032689GPV

PATIENT
  Age: 33 Year
  Sex: Female

DRUGS (1)
  1. AVELOX [Suspect]
     Indication: SALPINGO-OOPHORITIS
     Dosage: TOTAL DAILY DOSE: 400 MG  UNIT DOSE: 400 MG
     Route: 048
     Dates: start: 20100613, end: 20100615

REACTIONS (2)
  - APNOEA [None]
  - TACHYCARDIA [None]
